FAERS Safety Report 6070710-1 (Version None)
Quarter: 2009Q1

REPORT INFORMATION
  Report Type: 
  Country: None (occurrence: None)
  Receive Date: 20090209
  Receipt Date: 20090127
  Transmission Date: 20090719
  Serious: Yes (Other)
  Sender: FDA-Public Use
  Company Number: FR-ROCHE-555467

PATIENT
  Sex: Male

DRUGS (3)
  1. CELLCEPT [Suspect]
     Indication: RENAL TRANSPLANT
     Route: 048
  2. CELLCEPT [Suspect]
     Route: 048
     Dates: start: 20060122
  3. PROGRAF [Suspect]
     Indication: RENAL TRANSPLANT
     Route: 048
     Dates: start: 20060122

REACTIONS (3)
  - ASTHENOSPERMIA [None]
  - INFERTILITY TESTS ABNORMAL [None]
  - TERATOSPERMIA [None]
